FAERS Safety Report 17530397 (Version 2)
Quarter: 2020Q2

REPORT INFORMATION
  Report Type: Report from Study
  Country: IT (occurrence: IT)
  Receive Date: 20200311
  Receipt Date: 20200421
  Transmission Date: 20200713
  Serious: Yes (Hospitalization)
  Sender: FDA-Public Use
  Company Number: IT-TAKEDA-2020TUS013496

PATIENT
  Age: 56 Year
  Sex: Female

DRUGS (2)
  1. MUTABON [Suspect]
     Active Substance: AMITRIPTYLINE HYDROCHLORIDE\PERPHENAZINE
     Indication: DRUG ABUSE
     Dosage: UNK
     Route: 048
     Dates: start: 20200127, end: 20200127
  2. VORTIOXETINE. [Suspect]
     Active Substance: VORTIOXETINE
     Indication: DRUG ABUSE
     Dosage: UNK
     Route: 048
     Dates: start: 20200127, end: 20200127

REACTIONS (4)
  - Headache [Recovered/Resolved]
  - Drug abuse [Recovered/Resolved]
  - Oesophageal pain [Recovered/Resolved]
  - Intentional overdose [Unknown]

NARRATIVE: CASE EVENT DATE: 20200127
